FAERS Safety Report 6137976-0 (Version None)
Quarter: 2009Q1

REPORT INFORMATION
  Report Type: 
  Country: None (occurrence: None)
  Receive Date: 20090327
  Receipt Date: 20090327
  Transmission Date: 20090719
  Serious: Yes (Other)
  Sender: FDA-Public Use
  Company Number: None

PATIENT
  Age: 75 Year
  Sex: Female
  Weight: 64.8644 kg

DRUGS (2)
  1. RECLAST [Suspect]
     Indication: OSTEOPOROSIS POSTMENOPAUSAL
     Dosage: 5 MG. INFUSION IV. ONCE YRLY. INTRAVENOUS
     Route: 042
     Dates: start: 20071101
  2. RECLAST [Suspect]
     Indication: OSTEOPOROSIS POSTMENOPAUSAL
     Dosage: 5 MG. INFUSION IV. ONCE YRLY. INTRAVENOUS
     Route: 042
     Dates: start: 20081119

REACTIONS (11)
  - BLOOD PRESSURE INCREASED [None]
  - CLUSTER HEADACHE [None]
  - HEADACHE [None]
  - HEART RATE INCREASED [None]
  - HYPERACUSIS [None]
  - INFUSION RELATED REACTION [None]
  - MIGRAINE [None]
  - PAIN [None]
  - PALPITATIONS [None]
  - PHOTOPSIA [None]
  - VOMITING [None]
